FAERS Safety Report 24195228 (Version 1)
Quarter: 2024Q3

REPORT INFORMATION
  Report Type: Spontaneous
  Country: NL (occurrence: NL)
  Receive Date: 20240809
  Receipt Date: 20240809
  Transmission Date: 20241016
  Serious: Yes (Death)
  Sender: TEVA
  Company Number: None

PATIENT
  Age: 91 Year
  Sex: Male

DRUGS (7)
  1. ABIRATERONE [Suspect]
     Active Substance: ABIRATERONE
     Indication: Prostate cancer
     Dosage: 1DD2T, BRAND NAME NOT SPECIFIED
     Route: 065
     Dates: start: 20240501
  2. BISOPROLOL [Concomitant]
     Active Substance: BISOPROLOL\BISOPROLOL FUMARATE
     Indication: Product used for unknown indication
     Dosage: TABLET, 2,5 MG (MILLIGRAM) ,BRAND NAME NOT SPECIFIED
     Route: 065
  3. OMEPRAZOLE MAGNESIUM [Concomitant]
     Active Substance: OMEPRAZOLE MAGNESIUM
     Indication: Product used for unknown indication
     Dosage: 20 MG (MILLIGRAM), LOSECOSAN
     Route: 065
  4. SIMVASTATIN [Concomitant]
     Active Substance: SIMVASTATIN
     Indication: Product used for unknown indication
     Dosage: 40 MG (MILLIGRAM),  BRAND NAME NOT SPECIFIED
     Route: 065
  5. VOLCOLON [Concomitant]
     Indication: Product used for unknown indication
     Dosage: BAG (GRANULATE), 3.6 G (GRAM), PLANTAGO OVATA GRANULATE 3.6G  / VOLCOLON GRANULATE SUGAR-FREE 4G ...
     Route: 065
  6. PREDNISOLONE [Concomitant]
     Active Substance: PREDNISOLONE
     Indication: Product used for unknown indication
     Dosage: BRAND NAME NOT SPECIFIED
     Route: 065
  7. CARBASPIRIN [Concomitant]
     Active Substance: CARBASPIRIN
     Indication: Product used for unknown indication
     Dosage: 80 MG, CARBASALATE CALCIUM POWDER / ASCAL CARDIO SACHET
     Route: 065

REACTIONS (1)
  - Sepsis [Fatal]
